FAERS Safety Report 9476071 (Version 1)
Quarter: 2013Q3

REPORT INFORMATION
  Report Type: Spontaneous
  Country: US (occurrence: None)
  Receive Date: 20130822
  Receipt Date: 20130822
  Transmission Date: 20140515
  Serious: No
  Sender: FDA-Public Use
  Company Number: None

PATIENT
  Sex: 0

DRUGS (1)
  1. SUTENT [Suspect]
     Indication: ILL-DEFINED DISORDER
     Route: 048
     Dates: start: 20130711, end: 20130726

REACTIONS (2)
  - Fatigue [None]
  - Asthenia [None]
